FAERS Safety Report 5932749-3 (Version None)
Quarter: 2008Q4

REPORT INFORMATION
  Report Type: 
  Country: None (occurrence: None)
  Receive Date: 20081027
  Receipt Date: 20081027
  Transmission Date: 20090506
  Serious: Yes (Hospitalization)
  Sender: FDA-Public Use
  Company Number: None

PATIENT
  Sex: Female
  Weight: 69.54 kg

DRUGS (2)
  1. CISPLATIN [Suspect]
     Dosage: 53 MG
  2. ERBITUX [Suspect]
     Dosage: 438 MG

REACTIONS (7)
  - BLOOD ALBUMIN DECREASED [None]
  - HAEMATOCRIT DECREASED [None]
  - HAEMOGLOBIN DECREASED [None]
  - NAUSEA [None]
  - NEUTROPHIL PERCENTAGE INCREASED [None]
  - PLATELET COUNT INCREASED [None]
  - VOMITING [None]
